FAERS Safety Report 15376914 (Version 15)
Quarter: 2022Q2

REPORT INFORMATION
  Report Type: Report from Study
  Country: GB (occurrence: None)
  Receive Date: 20180913
  Receipt Date: 20220516
  Transmission Date: 20220720
  Serious: Yes (Other)
  Sender: FDA-Public Use
  Company Number: GB-EMA-DD-20171228-VSEVHPDD-123756

PATIENT
  Age: 55 Year
  Sex: Female

DRUGS (61)
  1. METHOTREXATE [Suspect]
     Active Substance: METHOTREXATE
     Indication: Product used for unknown indication
     Route: 065
  2. METHOTREXATE [Suspect]
     Active Substance: METHOTREXATE
     Route: 065
  3. METHOTREXATE [Suspect]
     Active Substance: METHOTREXATE
     Route: 065
  4. ABATACEPT [Suspect]
     Active Substance: ABATACEPT
     Indication: Rheumatoid arthritis
     Route: 058
     Dates: start: 20161202
  5. ABATACEPT [Suspect]
     Active Substance: ABATACEPT
     Route: 058
     Dates: start: 20161202
  6. ABATACEPT [Suspect]
     Active Substance: ABATACEPT
     Route: 058
     Dates: start: 20161202
  7. ABATACEPT [Suspect]
     Active Substance: ABATACEPT
     Route: 058
     Dates: start: 20161202
  8. ABATACEPT [Suspect]
     Active Substance: ABATACEPT
     Route: 058
     Dates: start: 20161202
  9. ABATACEPT [Suspect]
     Active Substance: ABATACEPT
     Route: 058
     Dates: start: 20161202
  10. ABATACEPT [Suspect]
     Active Substance: ABATACEPT
     Route: 058
     Dates: start: 20161002
  11. ABATACEPT [Suspect]
     Active Substance: ABATACEPT
     Route: 058
     Dates: start: 20161202
  12. ABATACEPT [Suspect]
     Active Substance: ABATACEPT
     Route: 058
     Dates: start: 20160902
  13. ABATACEPT [Suspect]
     Active Substance: ABATACEPT
     Route: 058
     Dates: start: 20160902
  14. ABATACEPT [Suspect]
     Active Substance: ABATACEPT
     Route: 058
     Dates: start: 20161202
  15. ABATACEPT [Suspect]
     Active Substance: ABATACEPT
     Route: 058
     Dates: start: 20161202
  16. ABATACEPT [Suspect]
     Active Substance: ABATACEPT
     Route: 065
  17. ABATACEPT [Suspect]
     Active Substance: ABATACEPT
     Route: 058
     Dates: start: 20161202
  18. ABATACEPT [Suspect]
     Active Substance: ABATACEPT
     Route: 058
     Dates: start: 20161202
  19. ABATACEPT [Suspect]
     Active Substance: ABATACEPT
     Route: 058
     Dates: start: 20161202
  20. ABATACEPT [Suspect]
     Active Substance: ABATACEPT
     Route: 058
  21. METHOTREXATE SODIUM [Suspect]
     Active Substance: METHOTREXATE SODIUM
     Indication: Blood pressure abnormal
     Route: 065
  22. METHOTREXATE SODIUM [Suspect]
     Active Substance: METHOTREXATE SODIUM
     Indication: Blood pressure measurement
     Route: 065
  23. RAMIPRIL [Concomitant]
     Active Substance: RAMIPRIL
     Indication: Blood pressure abnormal
     Route: 065
  24. RAMIPRIL [Concomitant]
     Active Substance: RAMIPRIL
     Route: 065
  25. MORPHINE [Concomitant]
     Active Substance: MORPHINE
     Dosage: PATCHES
     Route: 062
  26. MORPHINE [Concomitant]
     Active Substance: MORPHINE
     Route: 062
  27. MORPHINE [Concomitant]
     Active Substance: MORPHINE
     Route: 065
  28. LEVEMIR [Concomitant]
     Active Substance: INSULIN DETEMIR
     Route: 065
  29. LEVEMIR [Concomitant]
     Active Substance: INSULIN DETEMIR
     Route: 065
  30. FOLIC ACID [Concomitant]
     Active Substance: FOLIC ACID
     Route: 065
  31. FOLIC ACID [Concomitant]
     Active Substance: FOLIC ACID
     Route: 065
  32. TRAMADOL [Concomitant]
     Active Substance: TRAMADOL
     Route: 065
  33. CHOLECALCIFEROL [Concomitant]
     Active Substance: CHOLECALCIFEROL
     Route: 065
  34. CHOLECALCIFEROL [Concomitant]
     Active Substance: CHOLECALCIFEROL
     Route: 065
  35. ATORVASTATIN [Concomitant]
     Active Substance: ATORVASTATIN
     Route: 065
  36. ATORVASTATIN [Concomitant]
     Active Substance: ATORVASTATIN
     Route: 065
  37. BACLOFEN [Concomitant]
     Active Substance: BACLOFEN
     Indication: Rheumatoid arthritis
     Route: 065
  38. BACLOFEN [Concomitant]
     Active Substance: BACLOFEN
     Route: 065
  39. FLUCLOXACILLIN [Concomitant]
     Active Substance: FLUCLOXACILLIN
     Route: 065
  40. FLUCLOXACILLIN [Concomitant]
     Active Substance: FLUCLOXACILLIN
     Route: 065
  41. METFORMIN [Concomitant]
     Active Substance: METFORMIN HYDROCHLORIDE
     Route: 065
  42. METFORMIN [Concomitant]
     Active Substance: METFORMIN HYDROCHLORIDE
     Route: 065
  43. LANSOPRAZOLE [Concomitant]
     Active Substance: LANSOPRAZOLE
     Route: 065
  44. LANSOPRAZOLE [Concomitant]
     Active Substance: LANSOPRAZOLE
     Route: 065
  45. NAPROXEN [Concomitant]
     Active Substance: NAPROXEN
     Route: 065
  46. NAPROXEN [Concomitant]
     Active Substance: NAPROXEN
     Route: 065
  47. NOVORAPID [Concomitant]
     Active Substance: INSULIN ASPART
     Route: 065
  48. NOVORAPID [Concomitant]
     Active Substance: INSULIN ASPART
     Route: 065
  49. BUMETANIDE [Concomitant]
     Active Substance: BUMETANIDE
     Indication: Rheumatoid arthritis
     Route: 065
  50. BUMETANIDE [Concomitant]
     Active Substance: BUMETANIDE
     Route: 065
  51. VITAMIN D [Concomitant]
     Active Substance: VITAMIN D NOS
     Route: 065
  52. VITAMIN D COMPLEX [Concomitant]
     Route: 065
  53. CHOLECALCIFEROL [Concomitant]
     Active Substance: CHOLECALCIFEROL
     Route: 065
  54. CHOLECALCIFEROL [Concomitant]
     Active Substance: CHOLECALCIFEROL
     Route: 065
  55. TOCOTRIENOLS NOS [Concomitant]
     Route: 065
  56. MENAQUINONE-7 [COLECALCIFEROL;MENAQUINONE-7] [Concomitant]
     Route: 065
  57. TOCOPHEROL [Concomitant]
     Active Substance: TOCOPHEROL
     Route: 065
  58. PHYTONADIONE [Concomitant]
     Active Substance: PHYTONADIONE
     Route: 065
  59. VITAMIN A PALMITATE [Concomitant]
     Active Substance: VITAMIN A PALMITATE
     Route: 065
  60. METHOTREXATE SODIUM [Concomitant]
     Active Substance: METHOTREXATE SODIUM
     Indication: Blood pressure abnormal
     Route: 065
  61. VITAMIN E SUBSTANCES [Concomitant]
     Route: 065

REACTIONS (7)
  - Blister [Unknown]
  - Blister infected [Unknown]
  - Ingrowing nail [Unknown]
  - Cellulitis [Unknown]
  - Foot fracture [Unknown]
  - Tooth disorder [Unknown]
  - Skin exfoliation [Unknown]

NARRATIVE: CASE EVENT DATE: 20171101
